FAERS Safety Report 6601980-6 (Version None)
Quarter: 2010Q1

REPORT INFORMATION
  Report Type: 
  Country: None (occurrence: None)
  Receive Date: 20100225
  Receipt Date: 20100216
  Transmission Date: 20100710
  Serious: Yes (Other)
  Sender: FDA-Public Use
  Company Number: US-PFIZER INC-2010020837

PATIENT

DRUGS (2)
  1. CELEBREX [Suspect]
  2. ASACOL [Suspect]
     Dosage: 400 MG, UNK

REACTIONS (1)
  - NEPHROPATHY TOXIC [None]
